FAERS Safety Report 14918617 (Version 1)
Quarter: 2018Q2

REPORT INFORMATION
  Report Type: Spontaneous
  Country: US (occurrence: US)
  Receive Date: 20180521
  Receipt Date: 20180521
  Transmission Date: 20180711
  Serious: No
  Sender: FDA-Public Use
  Company Number: US-PFIZER INC-2018202969

PATIENT
  Sex: Female

DRUGS (4)
  1. SONATA [Suspect]
     Active Substance: ZALEPLON
     Dosage: 30 MG, UNK (JUST ONCE IN A WHILE)
  2. ZALEPLON. [Suspect]
     Active Substance: ZALEPLON
  3. SONATA [Suspect]
     Active Substance: ZALEPLON
     Dosage: 20 MG, 1X/DAY (AT NIGHT)
  4. SONATA [Suspect]
     Active Substance: ZALEPLON
     Dosage: 2 DF, 1X/DAY (MOSTLY HAVE BEEN TAKING TWO AT NIGHT)

REACTIONS (5)
  - Product use issue [Unknown]
  - Corneal abrasion [Unknown]
  - Intentional product misuse [Unknown]
  - Visual field defect [Unknown]
  - Photopsia [Unknown]
